FAERS Safety Report 12879483 (Version 1)
Quarter: 2016Q4

REPORT INFORMATION
  Report Type: Spontaneous
  Country: GB (occurrence: GB)
  Receive Date: 20161025
  Receipt Date: 20161025
  Transmission Date: 20170207
  Serious: Yes (Hospitalization)
  Sender: FDA-Public Use
  Company Number: GB-JNJFOC-20161014631

PATIENT
  Age: 31 Year
  Sex: Male

DRUGS (2)
  1. IBUPROFEN. [Suspect]
     Active Substance: IBUPROFEN
     Route: 048
  2. IBUPROFEN. [Suspect]
     Active Substance: IBUPROFEN
     Indication: MYALGIA
     Dosage: TWICE TO THREE TIMES A DAY THROUGHOUT THIS PERIOD
     Route: 048
     Dates: start: 20160905, end: 20160926

REACTIONS (4)
  - Upper gastrointestinal haemorrhage [Recovering/Resolving]
  - Gastroduodenitis [Recovering/Resolving]
  - Abdominal pain upper [Unknown]
  - Haematochezia [Unknown]

NARRATIVE: CASE EVENT DATE: 20161005
